FAERS Safety Report 9391676 (Version 1)
Quarter: 2013Q3

REPORT INFORMATION
  Report Type: Spontaneous
  Country: MX (occurrence: MX)
  Receive Date: 20130709
  Receipt Date: 20130709
  Transmission Date: 20140515
  Serious: Yes (Death)
  Sender: FDA-Public Use
  Company Number: MX-GLAXOSMITHKLINE-A1031443A

PATIENT
  Age: 57 Year
  Sex: Female

DRUGS (2)
  1. COREGA ULTRA [Suspect]
     Indication: DENTURE WEARER
  2. SERETIDE [Suspect]
     Route: 055

REACTIONS (1)
  - Death [Fatal]
